FAERS Safety Report 5858978-5 (Version None)
Quarter: 2008Q3

REPORT INFORMATION
  Report Type: 
  Country: None (occurrence: None)
  Receive Date: 20080825
  Receipt Date: 20080812
  Transmission Date: 20090109
  Serious: Yes (Other)
  Sender: FDA-Public Use
  Company Number: 230259M08USA

PATIENT

DRUGS (2)
  1. INTERFERON [Suspect]
     Indication: OFF LABEL USE
  2. LYRICA [Suspect]

REACTIONS (2)
  - CONVULSION [None]
  - OFF LABEL USE [None]
